FAERS Safety Report 21605770 (Version 5)
Quarter: 2023Q2

REPORT INFORMATION
  Report Type: Report from Study
  Country: US (occurrence: US)
  Receive Date: 20221116
  Receipt Date: 20230415
  Transmission Date: 20230722
  Serious: Yes (Hospitalization, Other)
  Sender: FDA-Public Use
  Company Number: US-ABBVIE-4202512

PATIENT
  Age: 82 Year
  Sex: Female

DRUGS (2)
  1. IMBRUVICA [Suspect]
     Active Substance: IBRUTINIB
     Indication: Chronic lymphocytic leukaemia
     Route: 048
     Dates: start: 20221230
  2. IMBRUVICA [Suspect]
     Active Substance: IBRUTINIB
     Indication: Chronic lymphocytic leukaemia
     Route: 048
     Dates: start: 202210, end: 202211

REACTIONS (8)
  - Hypotension [Recovered/Resolved]
  - Diarrhoea [Unknown]
  - Septic shock [Unknown]
  - Lymphadenopathy [Not Recovered/Not Resolved]
  - Incorrect dose administered [Unknown]
  - Alopecia [Unknown]
  - Swelling [Unknown]
  - Transfusion [Unknown]

NARRATIVE: CASE EVENT DATE: 20221101
